FAERS Safety Report 7074763-3 (Version None)
Quarter: 2010Q4

REPORT INFORMATION
  Report Type: 
  Country: None (occurrence: None)
  Receive Date: 20101029
  Receipt Date: 20101021
  Transmission Date: 20110411
  Serious: Yes (Other)
  Sender: FDA-Public Use
  Company Number: GB-ABBOTT-10P-167-0680247-00

PATIENT

DRUGS (1)
  1. SEVOFLURANE [Suspect]
     Route: 047

REACTIONS (2)
  - OCCUPATIONAL EXPOSURE TO DRUG [None]
  - PRODUCT CONTAINER ISSUE [None]
